FAERS Safety Report 8471293-9 (Version None)
Quarter: 2012Q2

REPORT INFORMATION
  Report Type: 
  Country: None (occurrence: None)
  Receive Date: 20120621
  Receipt Date: 20120612
  Transmission Date: 20120825
  Serious: Yes (Death, Hospitalization, Other)
  Sender: FDA-Public Use
  Company Number: SAN_00079_2012

PATIENT
  Age: 69 Year
  Sex: Male

DRUGS (9)
  1. ROSUVASTATIN [Concomitant]
  2. GABAPENTIN [Concomitant]
  3. GLIPIZIDE [Concomitant]
  4. METOPROLOL SUCCINATE [Concomitant]
  5. OMEPRAZOLE [Concomitant]
  6. SERTRALINE HYDROCHLORIDE [Concomitant]
  7. METFORMIN HCL [Suspect]
     Indication: PRODUCT USED FOR UNKNOWN INDICATION
  8. CLOPIDOGREL [Concomitant]
  9. LISINOPRIL [Concomitant]

REACTIONS (14)
  - VOMITING [None]
  - INTESTINAL DILATATION [None]
  - GENERAL PHYSICAL HEALTH DETERIORATION [None]
  - BLOOD PRESSURE DECREASED [None]
  - HYPERHIDROSIS [None]
  - OCCULT BLOOD POSITIVE [None]
  - BLOOD POTASSIUM INCREASED [None]
  - DIALYSIS [None]
  - ABDOMINAL PAIN [None]
  - FAECALOMA [None]
  - BLOOD SODIUM DECREASED [None]
  - BLOOD GLUCOSE INCREASED [None]
  - LACTIC ACIDOSIS [None]
  - NAUSEA [None]
